FAERS Safety Report 15385781 (Version 1)
Quarter: 2018Q4

REPORT INFORMATION
  Report Type: Spontaneous
  Country: ZA (occurrence: ZA)
  Receive Date: 20180914
  Receipt Date: 20180914
  Transmission Date: 20190204
  Serious: Yes (Death)
  Sender: FDA-Public Use
  Company Number: ZA-PFIZER INC-2018369570

PATIENT
  Age: 65 Year
  Sex: Male

DRUGS (15)
  1. ASPAVOR [Suspect]
     Active Substance: ATORVASTATIN
     Dosage: 40 MG, UNK
  2. TAMSUL [Suspect]
     Active Substance: TAMSULOSIN HYDROCHLORIDE
     Dosage: 0.4 MG, UNK
  3. CALCIFEROL [ERGOCALCIFEROL] [Suspect]
     Active Substance: ERGOCALCIFEROL
     Dosage: 50000 IU, UNK
  4. CIPLASYL [Suspect]
     Active Substance: PERINDOPRIL ERBUMINE
     Dosage: 40 UNK, UNK
  5. ECOTRIN [Suspect]
     Active Substance: ASPIRIN
     Dosage: 81 MG, UNK
  6. JANUVIA [Suspect]
     Active Substance: SITAGLIPTIN PHOSPHATE
     Dosage: 100 MG, UNK
  7. ARTHREXIN [Suspect]
     Active Substance: INDOMETHACIN
     Dosage: 25 MG, UNK
  8. DOPAQUEL [Suspect]
     Active Substance: QUETIAPINE
     Dosage: 5 MG, UNK
  9. FERRIMED [FERRIC HYDROXIDE POLYMALTOSE COMPLEX] [Suspect]
     Active Substance: IRON POLYMALTOSE
     Dosage: UNK
  10. GLUCOPHAGE [Suspect]
     Active Substance: METFORMIN HYDROCHLORIDE
     Dosage: 500 MG, UNK
  11. ESCITALOPRAM [Suspect]
     Active Substance: ESCITALOPRAM OXALATE
     Dosage: 20 MG, UNK
  12. OMEZ [OMEPRAZOLE] [Suspect]
     Active Substance: OMEPRAZOLE
     Dosage: 20 MG, UNK
  13. COVOCORT [Suspect]
     Active Substance: HYDROCORTISONE
     Dosage: 10 MG, UNK
  14. PURICOS [Suspect]
     Active Substance: ALLOPURINOL
     Dosage: 300 MG, UNK
  15. ELTROXIN [Suspect]
     Active Substance: LEVOTHYROXINE
     Dosage: 100 UG, UNK

REACTIONS (1)
  - Death [Fatal]

NARRATIVE: CASE EVENT DATE: 201808
